FAERS Safety Report 23212829 (Version 1)
Quarter: 2023Q4

REPORT INFORMATION
  Report Type: Spontaneous
  Country: CA (occurrence: CA)
  Receive Date: 20231121
  Receipt Date: 20231121
  Transmission Date: 20240110
  Serious: Yes (Other)
  Sender: FDA-Public Use
  Company Number: CA-PFIZER INC-202201114671

PATIENT
  Age: 38 Year
  Sex: Female

DRUGS (4)
  1. XELJANZ [Suspect]
     Active Substance: TOFACITINIB CITRATE
     Indication: Psoriatic arthropathy
     Dosage: 5 MG, 2X/DAY
     Route: 048
     Dates: start: 2022
  2. CORTISONE [Concomitant]
     Active Substance: CORTISONE
     Dosage: 1 DF, AS NEEDED(NO MORE DOSAGE INFO PROVIDED)
     Route: 065
  3. NAPROXEN [Concomitant]
     Active Substance: NAPROXEN
     Dosage: 1 DF, AS NEEDED(NO MORE DOSAGE INFO PROVIDED)
     Route: 065
  4. VENTOLIN [Concomitant]
     Active Substance: ALBUTEROL SULFATE
     Dosage: 1 DF, AS NEEDED (MORE DOSAGE INFO IS NOT PROVIDED)
     Route: 065

REACTIONS (6)
  - Gallbladder disorder [Unknown]
  - Sinusitis [Recovered/Resolved]
  - Blood iron decreased [Unknown]
  - C-reactive protein increased [Unknown]
  - Illness [Not Recovered/Not Resolved]
  - Pain [Not Recovered/Not Resolved]

NARRATIVE: CASE EVENT DATE: 20220601
